FAERS Safety Report 4417226-3 (Version None)
Quarter: 2004Q3

REPORT INFORMATION
  Report Type: 
  Country: None (occurrence: None)
  Receive Date: 20040806
  Receipt Date: 20040726
  Transmission Date: 20050211
  Serious: Yes (Congenital Anomaly)
  Sender: FDA-Public Use
  Company Number: US-ROCHE-375761

PATIENT

DRUGS (2)
  1. ACCUTANE [Suspect]
     Indication: DRUG USE FOR UNKNOWN INDICATION
     Dates: start: 20010316, end: 20010825
  2. ACCUTANE [Suspect]
     Dosage: FIRST COURSE.

REACTIONS (4)
  - DEVELOPMENTAL DELAY [None]
  - EAR MALFORMATION [None]
  - LOW SET EARS [None]
  - PREMATURE BABY [None]
